FAERS Safety Report 6239871-5 (Version None)
Quarter: 2009Q2

REPORT INFORMATION
  Report Type: 
  Country: None (occurrence: None)
  Receive Date: 20090619
  Receipt Date: 20090610
  Transmission Date: 20091009
  Serious: Yes (Other)
  Sender: FDA-Public Use
  Company Number: CLOF-1000586

PATIENT
  Age: 2 Year
  Sex: Male

DRUGS (3)
  1. CLOLAR [Suspect]
     Indication: MYELODYSPLASTIC SYNDROME
     Dosage: INTRAVENOUS
     Route: 042
     Dates: start: 20090301, end: 20090101
  2. THIOTEPA [Suspect]
     Indication: MYELODYSPLASTIC SYNDROME
     Dosage: INTRAVENOUS
     Route: 042
     Dates: start: 20090301, end: 20090101
  3. MELPHALAN HYDROCHLORIDE [Suspect]
     Indication: MYELODYSPLASTIC SYNDROME
     Dosage: INTRAVENOUS
     Route: 042
     Dates: start: 20090301, end: 20090101

REACTIONS (14)
  - ACUTE GRAFT VERSUS HOST DISEASE IN INTESTINE [None]
  - ACUTE GRAFT VERSUS HOST DISEASE IN LIVER [None]
  - CORD BLOOD TRANSPLANT THERAPY [None]
  - DELAYED ENGRAFTMENT [None]
  - DIARRHOEA HAEMORRHAGIC [None]
  - FLUID OVERLOAD [None]
  - HERPES VIRUS INFECTION [None]
  - HYPERBILIRUBINAEMIA [None]
  - ILEUS [None]
  - JAUNDICE [None]
  - NASOGASTRIC OUTPUT HIGH [None]
  - RASH MACULO-PAPULAR [None]
  - SEPSIS [None]
  - STEM CELL TRANSPLANT [None]
